FAERS Safety Report 17596051 (Version 1)
Quarter: 2020Q1

REPORT INFORMATION
  Report Type: Report from Study
  Country: CA (occurrence: CA)
  Receive Date: 20200330
  Receipt Date: 20200330
  Transmission Date: 20200409
  Serious: Yes (Other)
  Sender: FDA-Public Use
  Company Number: CA-ROCHE-2570260

PATIENT
  Sex: Female

DRUGS (6)
  1. ESTROGEN [Concomitant]
     Active Substance: ESTROGENS
  2. PROGESTERONE. [Concomitant]
     Active Substance: PROGESTERONE
  3. VITAMIN D [VITAMIN D NOS] [Concomitant]
     Active Substance: VITAMIN D NOS
  4. RITUXAN [Suspect]
     Active Substance: RITUXIMAB
     Indication: SPLENOMEGALY
     Dosage: ONGOING
     Route: 041
     Dates: start: 20150806
  5. RITUXAN [Suspect]
     Active Substance: RITUXIMAB
     Indication: SPLENIC MARGINAL ZONE LYMPHOMA
  6. VITAMIN C [Concomitant]
     Active Substance: ASCORBIC ACID

REACTIONS (6)
  - Hypotension [Unknown]
  - Dyspnoea [Unknown]
  - Febrile neutropenia [Unknown]
  - Tachycardia [Unknown]
  - Progressive multifocal leukoencephalopathy [Unknown]
  - Abdominal discomfort [Unknown]
